FAERS Safety Report 6572001-9 (Version None)
Quarter: 2010Q1

REPORT INFORMATION
  Report Type: 
  Country: None (occurrence: None)
  Receive Date: 20100202
  Receipt Date: 20100122
  Transmission Date: 20100710
  Serious: Yes (Other)
  Sender: FDA-Public Use
  Company Number: 2010EN000025

PATIENT
  Age: 82 Year
  Sex: Male

DRUGS (1)
  1. ABELCET [Suspect]
     Indication: FUNGAL INFECTION
     Dosage: 400 MG; QD; IV
     Route: 042
     Dates: start: 20091227, end: 20100106

REACTIONS (5)
  - BRONCHOSPASM [None]
  - HYPERTENSION [None]
  - PYREXIA [None]
  - TACHYCARDIA [None]
  - TACHYPNOEA [None]
